FAERS Safety Report 4817259-9 (Version None)
Quarter: 2005Q4

REPORT INFORMATION
  Report Type: 
  Country: None (occurrence: None)
  Receive Date: 20051101
  Receipt Date: 20051020
  Transmission Date: 20060501
  Serious: Yes (Hospitalization)
  Sender: FDA-Public Use
  Company Number: US-JNJFOC-20051005610

PATIENT
  Age: 25 Year
  Sex: Female

DRUGS (14)
  1. TYLENOL [Suspect]
     Route: 048
  2. TYLENOL [Suspect]
     Indication: SUICIDE ATTEMPT
     Dosage: AS MANY AS 67 (650 MG EACH, TOTAL 43.55 G)
     Route: 048
  3. NYQUIL [Interacting]
     Route: 048
  4. NYQUIL [Interacting]
     Route: 048
  5. NYQUIL [Interacting]
     Route: 048
  6. NYQUIL [Interacting]
     Route: 048
  7. NYQUIL [Interacting]
     Indication: SUICIDE ATTEMPT
     Route: 048
  8. PAROXETINE HCL [Concomitant]
  9. SYNTHROID [Concomitant]
  10. THIORIDAZINE HCL [Concomitant]
  11. CLONIDINE [Concomitant]
  12. OMEPRAZOLE [Concomitant]
  13. BACTRIM DS [Concomitant]
  14. BACTRIM DS [Concomitant]

REACTIONS (6)
  - ANALGESIC DRUG LEVEL INCREASED [None]
  - BLOOD BICARBONATE DECREASED [None]
  - BLOOD GLUCOSE INCREASED [None]
  - BLOOD POTASSIUM DECREASED [None]
  - DRUG INTERACTION [None]
  - INTENTIONAL DRUG MISUSE [None]
